FAERS Safety Report 5029255-X (Version None)
Quarter: 2006Q2

REPORT INFORMATION
  Report Type: 
  Country: None (occurrence: None)
  Receive Date: 20060613
  Receipt Date: 20060531
  Transmission Date: 20061013
  Serious: Yes (Death, Life-Threatening)
  Sender: FDA-Public Use
  Company Number: USA-2006-0024037

PATIENT
  Age: 43 Year
  Sex: Female
  Weight: 122.9 kg

DRUGS (7)
  1. OXYCODONE HCL [Suspect]
     Indication: ARTHRITIS
     Dosage: 80 MG, TID
     Dates: start: 20040420, end: 20060415
  2. WELLBUTRIN [Concomitant]
  3. NEURONTIN [Concomitant]
  4. NORTRIPTYLINE HCL [Concomitant]
  5. PREVACID [Concomitant]
  6. QUININE SULFATE [Concomitant]
  7. AMITRIPTYLINE HCL [Concomitant]

REACTIONS (8)
  - CARDIAC FAILURE CONGESTIVE [None]
  - DEPRESSION [None]
  - DYSARTHRIA [None]
  - MYOCARDIAL INFARCTION [None]
  - PAIN [None]
  - SUDDEN DEATH [None]
  - SWELLING [None]
  - WEIGHT INCREASED [None]
